FAERS Safety Report 22155515 (Version 1)
Quarter: 2023Q1

REPORT INFORMATION
  Report Type: Spontaneous
  Country: US (occurrence: US)
  Receive Date: 20230330
  Receipt Date: 20230330
  Transmission Date: 20230417
  Serious: Yes (Other)
  Sender: FDA-Public Use
  Company Number: US-MYLANLABS-2023M1033814

PATIENT
  Age: 67 Year
  Sex: Female

DRUGS (4)
  1. POMALIDOMIDE [Suspect]
     Active Substance: POMALIDOMIDE
     Indication: Thrombocytopenia
     Dosage: 0.5 MILLIGRAM, QD
     Route: 065
  2. PREDNISONE [Suspect]
     Active Substance: PREDNISONE
     Indication: Thrombocytopenia
     Dosage: 30 MILLIGRAM, QD, TAPERED OVER 3 MONTHS.
     Route: 065
  3. DANAZOL [Suspect]
     Active Substance: DANAZOL
     Indication: Thrombocytopenia
     Dosage: 200 MILLIGRAM, QD
     Route: 065
  4. DANAZOL [Suspect]
     Active Substance: DANAZOL
     Dosage: 200 MILLIGRAM, TID (UP TITRATED TO 200 MG 3 TIMES DAILY)
     Route: 065

REACTIONS (2)
  - Therapy non-responder [Unknown]
  - Off label use [Unknown]
